FAERS Safety Report 23383224 (Version 1)
Quarter: 2024Q1

REPORT INFORMATION
  Report Type: Spontaneous
  Country: DE (occurrence: DE)
  Receive Date: 20240109
  Receipt Date: 20240109
  Transmission Date: 20240409
  Serious: Yes (Other)
  Sender: FDA-Public Use
  Company Number: DE-KRKA-DE2023K17376SPO

PATIENT
  Age: 85 Year
  Sex: Female
  Weight: 52 kg

DRUGS (3)
  1. AMLODIPINE BESYLATE\VALSARTAN [Suspect]
     Active Substance: AMLODIPINE BESYLATE\VALSARTAN
     Indication: Product used for unknown indication
     Dosage: UNK
     Route: 065
     Dates: start: 202311
  2. AMLODIPINE BESYLATE\HYDROCHLOROTHIAZIDE\OLMESARTAN MEDOXOMIL [Suspect]
     Active Substance: AMLODIPINE BESYLATE\HYDROCHLOROTHIAZIDE\OLMESARTAN MEDOXOMIL
     Indication: Hypertension
     Dosage: 1 DOSAGE FORM, QD (20 MG, 12.5 MG, 5 MG), PER DAY 1-0-0
     Route: 048
     Dates: start: 2023, end: 202311
  3. AMLODIPINE BESYLATE\HYDROCHLOROTHIAZIDE\OLMESARTAN MEDOXOMIL [Suspect]
     Active Substance: AMLODIPINE BESYLATE\HYDROCHLOROTHIAZIDE\OLMESARTAN MEDOXOMIL
     Indication: Arrhythmia

REACTIONS (4)
  - Arrhythmia [Recovered/Resolved]
  - Feeling hot [Recovering/Resolving]
  - Hyperhidrosis [Recovering/Resolving]
  - Off label use [Unknown]
